FAERS Safety Report 23543252 (Version 2)
Quarter: 2024Q2

REPORT INFORMATION
  Report Type: Spontaneous
  Country: US (occurrence: US)
  Receive Date: 20240220
  Receipt Date: 20240416
  Transmission Date: 20240716
  Serious: Yes (Other)
  Sender: FDA-Public Use
  Company Number: US-BRISTOL-MYERS SQUIBB COMPANY-2024-026817

PATIENT
  Age: 87 Year
  Sex: Female

DRUGS (1)
  1. LENALIDOMIDE [Suspect]
     Active Substance: LENALIDOMIDE
     Indication: Plasma cell myeloma
     Dosage: WITH WATER, WITH OR WITHOUT FOOD AT SAME TIME DAILYC?TAKE 1 WHOLE CAPSULE BY MOUTH WITH WATER, W/ OR
     Route: 048
     Dates: start: 20221027

REACTIONS (2)
  - Pharyngitis streptococcal [Recovering/Resolving]
  - Urinary tract infection [Recovered/Resolved]
